FAERS Safety Report 7267350-5 (Version None)
Quarter: 2011Q1

REPORT INFORMATION
  Report Type: 
  Country: None (occurrence: None)
  Receive Date: 20110201
  Receipt Date: 20100503
  Transmission Date: 20110831
  Serious: No
  Sender: FDA-Public Use
  Company Number: A0858956A

PATIENT

DRUGS (1)
  1. ARIXTRA [Suspect]
     Indication: HEPARIN-INDUCED THROMBOCYTOPENIA
     Route: 065

REACTIONS (2)
  - ASPIRATION PLEURAL CAVITY [None]
  - OFF LABEL USE [None]
